FAERS Safety Report 11966369 (Version 1)
Quarter: 2016Q1

REPORT INFORMATION
  Report Type: Spontaneous
  Country: US (occurrence: US)
  Receive Date: 20160127
  Receipt Date: 20160127
  Transmission Date: 20160526
  Serious: No
  Sender: FDA-Public Use
  Company Number: US-ALLERGAN-1518800US

PATIENT
  Age: 74 Year
  Sex: Female
  Weight: 45.35 kg

DRUGS (15)
  1. ANTIVERT                           /00007101/ [Concomitant]
     Indication: MENIERE^S DISEASE
     Route: 048
  2. DOXYCYCLINE. [Concomitant]
     Active Substance: DOXYCYCLINE
     Indication: DRY EYE
     Route: 048
  3. PAXIL [Concomitant]
     Active Substance: PAROXETINE HYDROCHLORIDE
     Indication: NERVOUSNESS
     Route: 048
  4. ADVAIR HFA [Concomitant]
     Active Substance: FLUTICASONE PROPIONATE\SALMETEROL XINAFOATE
     Indication: PULMONARY MASS
     Route: 055
  5. TRIAM                              /00012501/ [Concomitant]
     Indication: MENIERE^S DISEASE
     Route: 048
  6. EVISTA [Concomitant]
     Active Substance: RALOXIFENE HYDROCHLORIDE
     Indication: BONE DENSITY DECREASED
     Route: 048
  7. LEVOTHYROXINE. [Concomitant]
     Active Substance: LEVOTHYROXINE
     Indication: HYPOTHYROIDISM
     Route: 048
  8. MINOCYCLINE [Concomitant]
     Active Substance: MINOCYCLINE\MINOCYCLINE HYDROCHLORIDE
     Indication: DRY EYE
     Route: 048
  9. COMPAZINE [Concomitant]
     Active Substance: PROCHLORPERAZINE MALEATE
     Indication: PROCEDURAL NAUSEA
  10. OXYCODONE [Concomitant]
     Active Substance: OXYCODONE
     Indication: PAIN
     Route: 048
  11. PRILOSEC [Concomitant]
     Active Substance: OMEPRAZOLE MAGNESIUM
     Indication: GASTROOESOPHAGEAL REFLUX DISEASE
     Route: 048
  12. XANAX [Concomitant]
     Active Substance: ALPRAZOLAM
     Indication: NERVOUSNESS
     Route: 048
  13. TRAZODONE [Concomitant]
     Active Substance: TRAZODONE HYDROCHLORIDE
     Indication: SLEEP DISORDER
     Route: 048
  14. SOMA [Concomitant]
     Active Substance: CARISOPRODOL
     Indication: MUSCLE RELAXANT THERAPY
     Route: 048
  15. BLEPHAMIDE [Suspect]
     Active Substance: PREDNISOLONE ACETATE\SULFACETAMIDE SODIUM
     Indication: BLEPHARITIS
     Dosage: UNK, PRN
     Route: 047
     Dates: start: 201508, end: 201509

REACTIONS (1)
  - Eye pruritus [Recovered/Resolved]

NARRATIVE: CASE EVENT DATE: 201508
